FAERS Safety Report 8565254-9 (Version None)
Quarter: 2012Q3

REPORT INFORMATION
  Report Type: 
  Country: None (occurrence: None)
  Receive Date: 20120803
  Receipt Date: 20120801
  Transmission Date: 20120928
  Serious: Yes (Other)
  Sender: FDA-Public Use
  Company Number: DE-GLAXOSMITHKLINE-B0819750A

PATIENT
  Sex: Female

DRUGS (1)
  1. CLOBETASOL PROPIONATE [Suspect]
     Indication: THERMAL BURN
     Route: 061
     Dates: start: 20120720, end: 20120720

REACTIONS (6)
  - EXPOSURE DURING BREAST FEEDING [None]
  - APPLICATION SITE PAIN [None]
  - APPLICATION SITE ERYTHEMA [None]
  - OFF LABEL USE [None]
  - CONDITION AGGRAVATED [None]
  - APPLICATION SITE VESICLES [None]
